FAERS Safety Report 10732346 (Version 4)
Quarter: 2015Q3

REPORT INFORMATION
  Report Type: Spontaneous
  Country: US (occurrence: US)
  Receive Date: 20150123
  Receipt Date: 20150706
  Transmission Date: 20151125
  Serious: Yes (Hospitalization, Other)
  Sender: FDA-Public Use
  Company Number: US-TEVA-535483USA

PATIENT
  Age: 33 Year
  Sex: Male

DRUGS (1)
  1. COPAXONE [Suspect]
     Active Substance: GLATIRAMER ACETATE
     Indication: MULTIPLE SCLEROSIS
     Dates: start: 20140804

REACTIONS (7)
  - Multiple sclerosis relapse [Recovering/Resolving]
  - Injection site haemorrhage [Unknown]
  - Panic attack [Recovered/Resolved]
  - Motor dysfunction [Recovered/Resolved]
  - Drug ineffective [Unknown]
  - Anxiety [Unknown]
  - Chills [Recovered/Resolved]

NARRATIVE: CASE EVENT DATE: 201412
